FAERS Safety Report 5325970-9 (Version None)
Quarter: 2007Q2

REPORT INFORMATION
  Report Type: 
  Country: None (occurrence: None)
  Receive Date: 20070516
  Receipt Date: 20070402
  Transmission Date: 20071010
  Serious: No
  Sender: FDA-Public Use
  Company Number: A0645881A

PATIENT

DRUGS (1)
  1. COREG CR [Suspect]

REACTIONS (1)
  - DEPRESSION [None]
